FAERS Safety Report 15236570 (Version 4)
Quarter: 2021Q2

REPORT INFORMATION
  Report Type: Report from Study
  Country: US (occurrence: US)
  Receive Date: 20180803
  Receipt Date: 20210603
  Transmission Date: 20210716
  Serious: Yes (Death, Life-Threatening, Hospitalization)
  Sender: FDA-Public Use
  Company Number: US-TEVA-2018-US-937022

PATIENT
  Age: 67 Year
  Sex: Female
  Weight: 60.1 kg

DRUGS (3)
  1. DAUNORUBICIN [Suspect]
     Active Substance: DAUNORUBICIN
     Dosage: UNKNOWN DOSE
     Route: 041
  2. CYTARABINE. [Suspect]
     Active Substance: CYTARABINE
     Indication: ACUTE MYELOID LEUKAEMIA
     Dosage: DAILY BY CONTINUOUS INFUSION
     Route: 041
     Dates: start: 20180611, end: 20180705
  3. DAUNORUBICIN [Suspect]
     Active Substance: DAUNORUBICIN
     Indication: ACUTE MYELOID LEUKAEMIA
     Route: 041
     Dates: start: 20180611, end: 20180715

REACTIONS (4)
  - Left ventricular dysfunction [Recovered/Resolved]
  - Sepsis [Not Recovered/Not Resolved]
  - Respiratory failure [Fatal]
  - Pneumonia fungal [Unknown]

NARRATIVE: CASE EVENT DATE: 20180712
